FAERS Safety Report 4703489-3 (Version None)
Quarter: 2005Q2

REPORT INFORMATION
  Report Type: 
  Country: None (occurrence: None)
  Receive Date: 20050628
  Receipt Date: 20050615
  Transmission Date: 20051028
  Serious: Yes (Other)
  Sender: FDA-Public Use
  Company Number: USA050699745

PATIENT
  Age: 76 Year
  Sex: Female
  Weight: 57 kg

DRUGS (6)
  1. FORTEO [Suspect]
     Indication: OSTEOPOROSIS
     Dosage: 20 UG DAY
     Dates: start: 20040601, end: 20050301
  2. DIOVAN [Concomitant]
  3. SYNTHROID [Concomitant]
  4. ACEBUTOLOL [Concomitant]
  5. XALATAN [Concomitant]
  6. FOLTX [Concomitant]

REACTIONS (3)
  - MUSCULAR WEAKNESS [None]
  - PHARMACEUTICAL PRODUCT COMPLAINT [None]
  - POLYMYOSITIS [None]
